FAERS Safety Report 10185861 (Version 1)
Quarter: 2014Q2

REPORT INFORMATION
  Report Type: Spontaneous
  Country: US (occurrence: US)
  Receive Date: 20140521
  Receipt Date: 20140521
  Transmission Date: 20141212
  Serious: Yes (Other)
  Sender: FDA-Public Use
  Company Number: US-BAYER-2014-071999

PATIENT
  Age: 18 Year
  Sex: Female
  Weight: 45.35 kg

DRUGS (1)
  1. ALEVE TABLET [Suspect]
     Dosage: UNK
     Route: 048

REACTIONS (5)
  - Self injurious behaviour [None]
  - Dizziness [None]
  - Vomiting [None]
  - Headache [None]
  - Intentional overdose [None]
